FAERS Safety Report 13396889 (Version 1)
Quarter: 2017Q2

REPORT INFORMATION
  Report Type: Spontaneous
  Country: NL (occurrence: NL)
  Receive Date: 20170403
  Receipt Date: 20170403
  Transmission Date: 20170830
  Serious: Yes (Death)
  Sender: FDA-Public Use
  Company Number: NL-TEVA-756237ISR

PATIENT
  Age: 59 Year
  Sex: Male

DRUGS (3)
  1. METHADONE [Concomitant]
     Active Substance: METHADONE HYDROCHLORIDE
  2. IBUPROFEN APOTEX OMHULDE TABLETTEN [Suspect]
     Active Substance: IBUPROFEN
     Indication: PRODUCT USED FOR UNKNOWN INDICATION
     Dosage: 400 MILLIGRAM DAILY;
     Route: 048
  3. LYRICA [Concomitant]
     Active Substance: PREGABALIN

REACTIONS (1)
  - Death [Fatal]

NARRATIVE: CASE EVENT DATE: 20161123
